FAERS Safety Report 7792275-6 (Version None)
Quarter: 2011Q4

REPORT INFORMATION
  Report Type: 
  Country: None (occurrence: None)
  Receive Date: 20111003
  Receipt Date: 20110921
  Transmission Date: 20120403
  Serious: Yes (Hospitalization)
  Sender: FDA-Public Use
  Company Number: FR-SANOFI-AVENTIS-2011SA061605

PATIENT
  Age: 89 Year
  Sex: Male

DRUGS (4)
  1. ASPIRIN [Concomitant]
  2. ARTISIAL [Concomitant]
  3. LEVOTHYROXINE SODIUM [Concomitant]
  4. MULTAQ [Suspect]
     Indication: ATRIAL FIBRILLATION
     Route: 048
     Dates: start: 20101022, end: 20110628

REACTIONS (1)
  - SYNCOPE [None]
